FAERS Safety Report 10846549 (Version 1)
Quarter: 2015Q1

REPORT INFORMATION
  Report Type: Spontaneous
  Country: JP (occurrence: JP)
  Receive Date: 20150220
  Receipt Date: 20150220
  Transmission Date: 20150721
  Serious: Yes (Hospitalization, Other)
  Sender: FDA-Public Use
  Company Number: JP-GSKJP-JP2015JPN020343AA

PATIENT
  Sex: Male

DRUGS (1)
  1. LAMICTAL [Suspect]
     Active Substance: LAMOTRIGINE
     Dosage: UNK
     Route: 048

REACTIONS (4)
  - Hyperthermia [Unknown]
  - Rash [Unknown]
  - Stevens-Johnson syndrome [Unknown]
  - Malaise [Unknown]

NARRATIVE: CASE EVENT DATE: 201407
